FAERS Safety Report 11444652 (Version 1)
Quarter: 2015Q3

REPORT INFORMATION
  Report Type: Spontaneous
  Country: US (occurrence: None)
  Receive Date: 20150831
  Receipt Date: 20150831
  Transmission Date: 20151125
  Serious: Yes (Disabling)
  Sender: FDA-Public Use
  Company Number: None

PATIENT
  Age: 41 Year
  Sex: Female
  Weight: 81.65 kg

DRUGS (9)
  1. CIPROFLOXACIN. [Suspect]
     Active Substance: CIPROFLOXACIN
     Indication: URINARY TRACT INFECTION
     Route: 048
     Dates: start: 20150326
  2. MULTI [Concomitant]
  3. MAGNESIUM CITRATE. [Concomitant]
     Active Substance: MAGNESIUM CITRATE
  4. POTTASIUM [Concomitant]
  5. CHLORELLA [Concomitant]
  6. LORAZEPAM. [Concomitant]
     Active Substance: LORAZEPAM
  7. PROBIOTICS [Concomitant]
     Active Substance: PROBIOTICS NOS
  8. VITAMIN B COMPLEX [Concomitant]
     Active Substance: CYANOCOBALAMIN\DEXPANTHENOL\NIACINAMIDE\PYRIDOXINE HYDROCHLORIDE\RIBOFLAVIN 5^-PHOSPHATE SODIUM\THIAMINE HYDROCHLORIDE\VITAMIN B COMPLEX
  9. L-LYSINE [Concomitant]
     Active Substance: LYSINE

REACTIONS (25)
  - Insomnia [None]
  - Vitreous floaters [None]
  - Neck pain [None]
  - Pain [None]
  - Head discomfort [None]
  - Hypoaesthesia [None]
  - Panic attack [None]
  - Dyskinesia [None]
  - Joint crepitation [None]
  - Back pain [None]
  - Joint stiffness [None]
  - Blood pressure increased [None]
  - Muscle spasms [None]
  - Thyroid disorder [None]
  - Flank pain [None]
  - Pollakiuria [None]
  - Feeling abnormal [None]
  - Anxiety [None]
  - Dizziness [None]
  - Depression [None]
  - Paraesthesia [None]
  - Tinnitus [None]
  - Burning sensation [None]
  - Tendon disorder [None]
  - Surgery [None]

NARRATIVE: CASE EVENT DATE: 20150326
